FAERS Safety Report 16387437 (Version 1)
Quarter: 2019Q2

REPORT INFORMATION
  Report Type: Spontaneous
  Country: US (occurrence: US)
  Receive Date: 20190426
  Receipt Date: 20190426
  Transmission Date: 20190711
  Serious: Yes (Death)
  Sender: FDA-Public Use
  Company Number: None

PATIENT
  Age: 80 Year
  Sex: Male

DRUGS (1)
  1. ESBRIET [Suspect]
     Active Substance: PIRFENIDONE
     Indication: IDIOPATHIC PULMONARY FIBROSIS
     Dosage: ?          OTHER FREQUENCY:1 TID ON DAYS 1-7 THEN 2 TID ON DAYS 8-16 THEN 3 TID THERE AFTER BY MOUTH
     Route: 048
     Dates: start: 20190131

REACTIONS (1)
  - Death [None]

NARRATIVE: CASE EVENT DATE: 20190203
